FAERS Safety Report 5142561-3 (Version None)
Quarter: 2006Q4

REPORT INFORMATION
  Report Type: 
  Country: None (occurrence: None)
  Receive Date: 20061031
  Receipt Date: 20061031
  Transmission Date: 20070319
  Serious: Yes (Hospitalization)
  Sender: FDA-Public Use
  Company Number: None

PATIENT
  Age: 1 Month
  Sex: Female
  Weight: 3.18 kg

DRUGS (2)
  1. METOCLOPRAMIDE HCL [Suspect]
     Indication: GASTROOESOPHAGEAL REFLUX DISEASE
     Dosage: 0.3 MG Q6H PO
     Route: 048
     Dates: start: 20060713, end: 20060727
  2. RANITIDINE HCL [Concomitant]

REACTIONS (3)
  - APNOEA [None]
  - CHOKING [None]
  - CYANOSIS [None]
